FAERS Safety Report 7634124-2 (Version None)
Quarter: 2011Q3

REPORT INFORMATION
  Report Type: 
  Country: None (occurrence: None)
  Receive Date: 20110725
  Receipt Date: 20110719
  Transmission Date: 20111222
  Serious: Yes (Other)
  Sender: FDA-Public Use
  Company Number: US-GILEAD-2011-0040867

PATIENT
  Sex: Male
  Weight: 59.928 kg

DRUGS (11)
  1. LETAIRIS [Suspect]
     Indication: MITRAL VALVE STENOSIS
  2. LETAIRIS [Suspect]
     Indication: LUNG DISORDER
  3. LASIX [Concomitant]
     Dates: start: 20080205
  4. SYNTHROID [Concomitant]
  5. LETAIRIS [Suspect]
     Indication: PULMONARY HYPERTENSION
     Route: 048
     Dates: start: 20110509, end: 20110613
  6. REVATIO [Concomitant]
     Dates: start: 20110114, end: 20110516
  7. ZIAC [Concomitant]
  8. MIRTAZAPINE [Concomitant]
  9. INSPRA [Concomitant]
  10. LETAIRIS [Suspect]
     Indication: MITRAL VALVE INCOMPETENCE
  11. SIMVASTATIN [Concomitant]

REACTIONS (1)
  - HYPOXIA [None]
